FAERS Safety Report 21303663 (Version 1)
Quarter: 2022Q3

REPORT INFORMATION
  Report Type: Spontaneous
  Country: US (occurrence: None)
  Receive Date: 20220907
  Receipt Date: 20220907
  Transmission Date: 20221027
  Serious: Yes (Other)
  Sender: FDA-Public Use
  Company Number: None

PATIENT
  Age: 47 Year
  Sex: Male
  Weight: 108 kg

DRUGS (5)
  1. LAGEVRIO [Suspect]
     Active Substance: MOLNUPIRAVIR
     Indication: COVID-19
     Dosage: OTHER QUANTITY : 40 CAPSULE(S);?FREQUENCY : EVERY 12 HOURS;?
     Route: 048
     Dates: start: 20220809, end: 20220814
  2. Simvastatin 40mg 2x daily [Concomitant]
  3. Topiramate 50mg 2x daily [Concomitant]
  4. Buproprion 450mg 1x daily [Concomitant]
  5. Fish Oil Nature Made 1400mg (1000mg Omega3) [Concomitant]

REACTIONS (10)
  - Confusional state [None]
  - Dizziness postural [None]
  - Lethargy [None]
  - Fatigue [None]
  - Muscle fatigue [None]
  - COVID-19 [None]
  - Pyrexia [None]
  - Pneumonia [None]
  - Bronchitis [None]
  - Memory impairment [None]

NARRATIVE: CASE EVENT DATE: 20220811
